FAERS Safety Report 6080523-2 (Version None)
Quarter: 2009Q1

REPORT INFORMATION
  Report Type: 
  Country: None (occurrence: None)
  Receive Date: 20090217
  Receipt Date: 20090209
  Transmission Date: 20090719
  Serious: Yes (Life-Threatening, Hospitalization, Disabling, Other)
  Sender: FDA-Public Use
  Company Number: A0759078A

PATIENT
  Age: 51 Year
  Sex: Female
  Weight: 76.6 kg

DRUGS (13)
  1. LAMOTRIGINE [Suspect]
     Route: 048
     Dates: start: 20080728, end: 20081203
  2. LEVOTHYROXINE SODIUM [Concomitant]
     Dosage: 25MG PER DAY
     Route: 048
  3. PREMARIN [Concomitant]
     Dosage: .3MG PER DAY
     Route: 048
  4. TOPIRAMATE [Concomitant]
     Dosage: 100MG PER DAY
     Route: 048
  5. PROLIXIN [Concomitant]
     Dosage: 10MG TWICE PER DAY
     Route: 048
  6. BENADRYL [Concomitant]
  7. COGENTIN [Concomitant]
     Dosage: 1MG TWICE PER DAY
     Route: 048
  8. ANTI-PSYCHOTIC MEDICATION [Concomitant]
  9. ANTICHOLINERGIC [Concomitant]
  10. UNSPECIFIED ANTIBIOTIC [Concomitant]
  11. CLONAZEPAM [Concomitant]
     Dosage: 1MG TWICE PER DAY
     Route: 048
  12. DOCUSATE [Concomitant]
     Dosage: 100MG TWICE PER DAY
     Route: 048
  13. DEPAKOTE [Concomitant]

REACTIONS (25)
  - ABASIA [None]
  - AGITATION [None]
  - ANOREXIA [None]
  - APHASIA [None]
  - BLOOD CREATINE PHOSPHOKINASE INCREASED [None]
  - CONFUSIONAL STATE [None]
  - CONVULSION [None]
  - DEPRESSED LEVEL OF CONSCIOUSNESS [None]
  - DISORIENTATION [None]
  - DYSPHAGIA [None]
  - DYSTONIA [None]
  - ERYTHEMA [None]
  - HYPOKALAEMIA [None]
  - IRON DEFICIENCY [None]
  - LIVER INJURY [None]
  - MUSCLE RIGIDITY [None]
  - NUTRITIONAL CONDITION ABNORMAL [None]
  - PARANOIA [None]
  - PSYCHOMOTOR RETARDATION [None]
  - RASH [None]
  - RESPIRATORY FAILURE [None]
  - RHABDOMYOLYSIS [None]
  - TREMOR [None]
  - URINARY TRACT INFECTION [None]
  - WEIGHT DECREASED [None]
